FAERS Safety Report 10640228 (Version 4)
Quarter: 2015Q2

REPORT INFORMATION
  Report Type: Spontaneous
  Country: ES (occurrence: None)
  Receive Date: 20141205
  Receipt Date: 20150430
  Transmission Date: 20150821
  Serious: Yes (Other)
  Sender: FDA-Public Use
  Company Number: 2014ES010355

PATIENT
  Age: 66 Year
  Sex: Male

DRUGS (4)
  1. LYRICA [Concomitant]
     Active Substance: PREGABALIN
  2. ZELDOX (ZIPRASIDONE HYDROCHLORIDE) [Concomitant]
  3. IBUPROFEN (IBUPROFEN) [Concomitant]
     Active Substance: IBUPROFEN
  4. ELIGARD [Suspect]
     Active Substance: LEUPROLIDE ACETATE
     Indication: PROSTATE CANCER
     Dosage: 22.5 MG, QUARTERLY
     Route: 058
     Dates: start: 20130418, end: 20141018

REACTIONS (2)
  - Pulmonary fibrosis [None]
  - Interstitial lung disease [None]

NARRATIVE: CASE EVENT DATE: 20140424
